FAERS Safety Report 6332279-3 (Version None)
Quarter: 2009Q3

REPORT INFORMATION
  Report Type: 
  Country: None (occurrence: None)
  Receive Date: 20090828
  Receipt Date: 20090827
  Transmission Date: 20100115
  Serious: Yes (Hospitalization, Other)
  Sender: FDA-Public Use
  Company Number: US-PFIZER INC-2009234931

PATIENT
  Sex: Female

DRUGS (6)
  1. XANAX [Suspect]
     Indication: ANXIETY
     Dosage: 1 MG, UNK
     Route: 048
  2. XANAX [Suspect]
     Indication: PANIC ATTACK
  3. ALPRAZOLAM [Suspect]
     Indication: ANXIETY
     Dosage: 1 MG, UNK
     Route: 048
  4. ALPRAZOLAM [Suspect]
     Indication: PANIC ATTACK
  5. ALPRAZOLAM [Suspect]
     Dosage: 1 MG, UNK
     Route: 048
  6. ALPRAZOLAM [Suspect]

REACTIONS (7)
  - AGITATION [None]
  - COGNITIVE DISORDER [None]
  - DYSPHAGIA [None]
  - DYSPNOEA [None]
  - NERVOUSNESS [None]
  - PNEUMONIA [None]
  - WITHDRAWAL SYNDROME [None]
